FAERS Safety Report 4527439-8 (Version None)
Quarter: 2004Q4

REPORT INFORMATION
  Report Type: 
  Country: None (occurrence: None)
  Receive Date: 20041130
  Receipt Date: 20040913
  Transmission Date: 20050328
  Serious: No
  Sender: FDA-Public Use
  Company Number: WAES 0409USA01178

PATIENT
  Age: 82 Year
  Sex: Female

DRUGS (4)
  1. ZETIA [Suspect]
     Dosage: 10 MG/DAILY/PO
     Route: 048
     Dates: start: 20040101
  2. NORVASC [Concomitant]
  3. FOLIC ACID [Concomitant]
  4. INDAPAMIDE [Concomitant]

REACTIONS (2)
  - ARTHRALGIA [None]
  - DRUG INEFFECTIVE [None]
